FAERS Safety Report 13954623 (Version 3)
Quarter: 2017Q3

REPORT INFORMATION
  Report Type: Report from Study
  Country: FR (occurrence: FR)
  Receive Date: 20170911
  Receipt Date: 20170925
  Transmission Date: 20171128
  Serious: Yes (Hospitalization)
  Sender: FDA-Public Use
  Company Number: FR-SA-2017SA140315

PATIENT
  Age: 81 Year
  Sex: Male

DRUGS (12)
  1. CAMPATH [Suspect]
     Active Substance: ALEMTUZUMAB
     Indication: T-CELL TYPE ACUTE LEUKAEMIA
     Dosage: DOSE:90 MILLIGRAM(S)/MILLILITRE
     Route: 041
     Dates: start: 201707, end: 20170724
  2. CAMPATH [Suspect]
     Active Substance: ALEMTUZUMAB
     Indication: T-CELL TYPE ACUTE LEUKAEMIA
     Route: 041
     Dates: start: 2017, end: 2017
  3. ESIDREX [Concomitant]
     Active Substance: HYDROCHLOROTHIAZIDE
     Dosage: 1/2 0 0
     Route: 065
  4. CALCIDIA [Concomitant]
     Active Substance: CALCIUM POLYCARBOPHIL
     Route: 065
  5. FORLAX [Concomitant]
     Active Substance: POLYETHYLENE GLYCOL 4000
     Indication: CONSTIPATION
     Dosage: 200 IN CASE OF CONSTIPATION
     Route: 065
  6. VALACICLOVIR [Concomitant]
     Active Substance: VALACYCLOVIR HYDROCHLORIDE
     Route: 065
  7. ADENURIC [Concomitant]
     Active Substance: FEBUXOSTAT
     Route: 065
  8. BACTRIM [Concomitant]
     Active Substance: SULFAMETHOXAZOLE\TRIMETHOPRIM
     Dosage: 1 TABLET ON TUESDAY, FRIDAY AND SUNDAY.
     Route: 065
  9. CAMPATH [Suspect]
     Active Substance: ALEMTUZUMAB
     Indication: T-CELL TYPE ACUTE LEUKAEMIA
     Route: 041
     Dates: start: 20170807
  10. MODOPAR [Concomitant]
     Active Substance: BENSERAZIDE HYDROCHLORIDE\LEVODOPA
     Route: 065
  11. LASILIX [Concomitant]
     Active Substance: FUROSEMIDE
     Route: 065
  12. ZOPICLONE [Concomitant]
     Active Substance: ZOPICLONE
     Indication: INSOMNIA
     Route: 065

REACTIONS (16)
  - Hepatic steatosis [Unknown]
  - Platelet count decreased [Unknown]
  - Pyrexia [Recovered/Resolved]
  - Chills [Recovered/Resolved]
  - Infection [Unknown]
  - Aspartate aminotransferase abnormal [Unknown]
  - Lymphocyte count abnormal [Unknown]
  - Oxygen saturation decreased [Recovered/Resolved]
  - Blood alkaline phosphatase abnormal [Unknown]
  - White blood cell count decreased [Unknown]
  - Hypertension [Recovered/Resolved]
  - Nephropathy [Unknown]
  - Blood creatinine abnormal [Unknown]
  - Blood pressure increased [Recovered/Resolved]
  - Gamma-glutamyltransferase abnormal [Unknown]
  - Blood lactate dehydrogenase increased [Unknown]

NARRATIVE: CASE EVENT DATE: 2017
